FAERS Safety Report 8852007 (Version 1)
Quarter: 2012Q4

REPORT INFORMATION
  Report Type: Spontaneous
  Country: BR (occurrence: None)
  Receive Date: 20121017
  Receipt Date: 20121017
  Transmission Date: 20130627
  Serious: Yes (Hospitalization)
  Sender: FDA-Public Use
  Company Number: IMP_06018_2012

PATIENT
  Age: 38 Year
  Sex: Female

DRUGS (1)
  1. RILUZOLE (RILUZOLE) [Suspect]
     Indication: DRUG EXPOSURE DURING PREGNANCY
     Dosage: (DF)

REACTIONS (2)
  - Caesarean section [None]
  - Exposure during pregnancy [None]
